FAERS Safety Report 5118533-1 (Version None)
Quarter: 2006Q3

REPORT INFORMATION
  Report Type: 
  Country: None (occurrence: None)
  Receive Date: 20060927
  Receipt Date: 20060917
  Transmission Date: 20061208
  Serious: Yes (Hospitalization)
  Sender: FDA-Public Use
  Company Number: 2006111799

PATIENT
  Age: 78 Year
  Sex: Female

DRUGS (5)
  1. ZOLOFT [Suspect]
     Dosage: ORAL
     Route: 048
     Dates: end: 20060817
  2. CIPROFLOXACIN [Suspect]
     Dosage: 1000 MG, ORAL
     Route: 048
     Dates: start: 20060707, end: 20060817
  3. RIFADIN [Suspect]
     Dosage: 900 MG, ORAL
     Route: 048
     Dates: start: 20060707, end: 20060817
  4. ARAVA [Suspect]
     Dosage: 10 MG, ORAL
     Route: 048
     Dates: end: 20060817
  5. NEXIUM [Suspect]
     Dosage: 40 MG, ORAL
     Route: 048
     Dates: start: 20060717, end: 20060817

REACTIONS (1)
  - NEUTROPENIA [None]
